FAERS Safety Report 13206856 (Version 3)
Quarter: 2018Q2

REPORT INFORMATION
  Report Type: Spontaneous
  Country: US (occurrence: US)
  Receive Date: 20170209
  Receipt Date: 20180430
  Transmission Date: 20180711
  Serious: No
  Sender: FDA-Public Use
  Company Number: US-SA-2016SA225967

PATIENT
  Age: 82 Year
  Sex: Male
  Weight: 76.6 kg

DRUGS (22)
  1. ASPIRIN. [Concomitant]
     Active Substance: ASPIRIN
  2. FLUTICASONE PROPIONATE. [Concomitant]
     Active Substance: FLUTICASONE PROPIONATE
  3. RANEXA [Concomitant]
     Active Substance: RANOLAZINE
     Dosage: EXTENDED RELEASE TABLET
     Route: 048
  4. ALIROCUMAB PREFILLED PEN [Suspect]
     Active Substance: ALIROCUMAB
     Indication: BLOOD CHOLESTEROL
     Dates: start: 20160830, end: 201701
  5. PROAIR HFA [Concomitant]
     Active Substance: ALBUTEROL SULFATE
     Dosage: 2 PUFFS EVERY 4-6 HOURS AS NEEDED
  6. NITROSTAT [Concomitant]
     Active Substance: NITROGLYCERIN
  7. GLUCOSAMINE [Concomitant]
     Active Substance: GLUCOSAMINE
     Route: 048
  8. PREDNISONE. [Concomitant]
     Active Substance: PREDNISONE
     Route: 048
  9. PRALUENT [Suspect]
     Active Substance: ALIROCUMAB
     Indication: BLOOD CHOLESTEROL
     Dosage: STRENGTH NO PROVIDED
     Route: 065
     Dates: start: 20160830, end: 201701
  10. LOSARTAN POTASSIUM. [Concomitant]
     Active Substance: LOSARTAN POTASSIUM
     Route: 048
  11. TYLENOL [Concomitant]
     Active Substance: ACETAMINOPHEN
     Dosage: STRENGTH: 500MG
  12. WARFARIN SODIUM. [Concomitant]
     Active Substance: WARFARIN SODIUM
     Dosage: STRENGTH: 5MG
     Route: 048
  13. HYDROCORTISONE. [Concomitant]
     Active Substance: HYDROCORTISONE
     Dosage: STRENGTH: 2.5%
     Route: 054
  14. SYMBICORT [Concomitant]
     Active Substance: BUDESONIDE\FORMOTEROL FUMARATE DIHYDRATE
     Dosage: 2 INHALATIONS EVERY 12 HOURS
     Route: 055
  15. COPPER GLUCONATE [Concomitant]
     Active Substance: COPPER GLUCONATE
     Dosage: STRENGTH: 3MG
  16. COQ10 [Concomitant]
     Active Substance: UBIDECARENONE
  17. PRALUENT [Suspect]
     Active Substance: ALIROCUMAB
     Indication: HYPERLIPIDAEMIA
     Dosage: STRENGTH NO PROVIDED
     Route: 065
     Dates: start: 20160830, end: 201701
  18. ALIROCUMAB PREFILLED PEN [Suspect]
     Active Substance: ALIROCUMAB
     Indication: HYPERLIPIDAEMIA
     Dates: start: 20160830, end: 201701
  19. FINASTERIDE. [Concomitant]
     Active Substance: FINASTERIDE
     Dosage: STRENGTH: 5MG
     Route: 048
  20. ZANTAC [Concomitant]
     Active Substance: RANITIDINE HYDROCHLORIDE
     Route: 048
  21. LIPOFLAVONOID [Concomitant]
     Active Substance: UNSPECIFIED INGREDIENT
     Route: 048
  22. LIVALO [Concomitant]
     Active Substance: PITAVASTATIN CALCIUM
     Route: 048

REACTIONS (2)
  - Product use issue [Unknown]
  - Pruritus generalised [Not Recovered/Not Resolved]

NARRATIVE: CASE EVENT DATE: 20161207
